FAERS Safety Report 8005277-1 (Version None)
Quarter: 2011Q4

REPORT INFORMATION
  Report Type: 
  Country: None (occurrence: None)
  Receive Date: 20111223
  Receipt Date: 20111213
  Transmission Date: 20120403
  Serious: Yes (Other)
  Sender: FDA-Public Use
  Company Number: CA-JNJFOC-20111208157

PATIENT
  Sex: Female
  Weight: 75 kg

DRUGS (8)
  1. MESALAMINE [Concomitant]
  2. DIOVAN [Concomitant]
  3. VSL3 [Concomitant]
  4. ADALAT CC [Concomitant]
  5. REMICADE [Suspect]
     Route: 042
     Dates: start: 20080116
  6. REMICADE [Suspect]
     Indication: COLITIS ULCERATIVE
     Route: 042
  7. CORTENEMA [Concomitant]
  8. IMODIUM [Concomitant]

REACTIONS (4)
  - FALL [None]
  - RIB FRACTURE [None]
  - RASH PRURITIC [None]
  - LIP INJURY [None]
